FAERS Safety Report 22879056 (Version 4)
Quarter: 2023Q4

REPORT INFORMATION
  Report Type: Spontaneous
  Country: US (occurrence: US)
  Receive Date: 20230829
  Receipt Date: 20231213
  Transmission Date: 20240110
  Serious: No
  Sender: FDA-Public Use
  Company Number: US-BRISTOL-MYERS SQUIBB COMPANY-2023-121788

PATIENT
  Age: 76 Year
  Sex: Female
  Weight: 68.49 kg

DRUGS (1)
  1. LENALIDOMIDE [Suspect]
     Active Substance: LENALIDOMIDE
     Indication: Plasma cell myeloma
     Route: 048
     Dates: start: 20220327

REACTIONS (11)
  - Diarrhoea [Recovering/Resolving]
  - Fatigue [Not Recovered/Not Resolved]
  - Asthenia [Recovering/Resolving]
  - Respiratory tract infection viral [Recovering/Resolving]
  - Off label use [Unknown]
  - Arthralgia [Unknown]
  - Musculoskeletal pain [Unknown]
  - Blood potassium decreased [Unknown]
  - Pain [Unknown]
  - Muscle spasms [Recovering/Resolving]
  - Pain [Recovering/Resolving]

NARRATIVE: CASE EVENT DATE: 20230601
